FAERS Safety Report 16476446 (Version 1)
Quarter: 2019Q2

REPORT INFORMATION
  Report Type: Spontaneous
  Country: US (occurrence: US)
  Receive Date: 20190626
  Receipt Date: 20190626
  Transmission Date: 20190711
  Serious: No
  Sender: FDA-Public Use
  Company Number: US-ASTRAZENECA-2019SE81484

PATIENT
  Sex: Male
  Weight: 97.5 kg

DRUGS (1)
  1. SYMBICORT [Suspect]
     Active Substance: BUDESONIDE\FORMOTEROL FUMARATE DIHYDRATE
     Indication: ASTHMA
     Dosage: 160/4.5 MCG,2 PUFFS TWICE A DAY
     Route: 055
     Dates: start: 2016

REACTIONS (5)
  - Intentional device misuse [Not Recovered/Not Resolved]
  - Dyspnoea [Not Recovered/Not Resolved]
  - Decreased activity [Not Recovered/Not Resolved]
  - Device issue [Unknown]
  - Drug ineffective [Not Recovered/Not Resolved]
